FAERS Safety Report 25509592 (Version 6)
Quarter: 2025Q3

REPORT INFORMATION
  Report Type: Spontaneous
  Country: US (occurrence: US)
  Receive Date: 20250703
  Receipt Date: 20250830
  Transmission Date: 20251020
  Serious: Yes (Hospitalization, Other)
  Sender: UNITED THERAPEUTICS
  Company Number: US-UNITED THERAPEUTICS-UNT-2025-020693

PATIENT
  Sex: Male
  Weight: 75.283 kg

DRUGS (27)
  1. TYVASO DPI [Suspect]
     Active Substance: TREPROSTINIL
     Indication: Pulmonary arterial hypertension
     Dosage: 16 ?G, QID
     Dates: start: 2025, end: 2025
  2. TYVASO DPI [Suspect]
     Active Substance: TREPROSTINIL
     Indication: Interstitial lung disease
     Dosage: 32 ?G, QID
     Dates: start: 2025, end: 2025
  3. TYVASO DPI [Suspect]
     Active Substance: TREPROSTINIL
     Indication: Chronic respiratory failure
     Dosage: 16 ?G, QID
     Dates: start: 2025, end: 2025
  4. TYVASO DPI [Suspect]
     Active Substance: TREPROSTINIL
     Indication: COVID-19
     Dosage: 32 ?G, QID
     Dates: start: 2025, end: 2025
  5. TYVASO DPI [Suspect]
     Active Substance: TREPROSTINIL
     Indication: Acute respiratory distress syndrome
     Dosage: 16 ?G, QID
     Dates: start: 2025, end: 2025
  6. TYVASO DPI [Suspect]
     Active Substance: TREPROSTINIL
  7. TYVASO DPI [Suspect]
     Active Substance: TREPROSTINIL
     Indication: Pulmonary arterial hypertension
  8. TYVASO DPI [Suspect]
     Active Substance: TREPROSTINIL
     Indication: Interstitial lung disease
  9. TYVASO DPI [Suspect]
     Active Substance: TREPROSTINIL
     Indication: Chronic respiratory failure
  10. TYVASO DPI [Suspect]
     Active Substance: TREPROSTINIL
     Indication: COVID-19
  11. TYVASO DPI [Suspect]
     Active Substance: TREPROSTINIL
     Indication: Acute respiratory distress syndrome
  12. TYVASO DPI [Suspect]
     Active Substance: TREPROSTINIL
     Indication: Pulmonary arterial hypertension
  13. TYVASO DPI [Suspect]
     Active Substance: TREPROSTINIL
     Indication: Interstitial lung disease
  14. TYVASO DPI [Suspect]
     Active Substance: TREPROSTINIL
     Indication: Chronic respiratory failure
  15. TYVASO DPI [Suspect]
     Active Substance: TREPROSTINIL
     Indication: COVID-19
  16. TYVASO DPI [Suspect]
     Active Substance: TREPROSTINIL
     Indication: Acute respiratory distress syndrome
  17. ALBUTEROL SULFATE [Concomitant]
     Active Substance: ALBUTEROL SULFATE
     Indication: Product used for unknown indication
  18. OFEV [Concomitant]
     Active Substance: NINTEDANIB
     Indication: Product used for unknown indication
  19. FENOFIBRATE [Concomitant]
     Active Substance: FENOFIBRATE
     Indication: Product used for unknown indication
  20. OXYGEN [Concomitant]
     Active Substance: OXYGEN
     Indication: Oxygen saturation decreased
  21. ACETYLCYSTEINE [Concomitant]
     Active Substance: ACETYLCYSTEINE
     Indication: Product used for unknown indication
  22. AZITHROMYCIN [Concomitant]
     Active Substance: AZITHROMYCIN
     Indication: Pneumonia
  23. PIRFENIDONE [Concomitant]
     Active Substance: PIRFENIDONE
     Indication: Product used for unknown indication
  24. PREDNISONE [Concomitant]
     Active Substance: PREDNISONE
     Indication: Product used for unknown indication
  25. DIGOXIN [Concomitant]
     Active Substance: DIGOXIN
     Indication: Atrial fibrillation
  26. DILTIAZEM [Concomitant]
     Active Substance: DILTIAZEM
     Indication: Atrial fibrillation
  27. PRADAXA [Concomitant]
     Active Substance: DABIGATRAN ETEXILATE MESYLATE
     Indication: Atrial fibrillation

REACTIONS (14)
  - Hypervolaemia [Not Recovered/Not Resolved]
  - Dyspnoea exertional [Not Recovered/Not Resolved]
  - Decreased appetite [Not Recovered/Not Resolved]
  - Atrial fibrillation [Not Recovered/Not Resolved]
  - Pneumonia [Recovered/Resolved]
  - Ageusia [Not Recovered/Not Resolved]
  - Oxygen saturation decreased [Not Recovered/Not Resolved]
  - Productive cough [Not Recovered/Not Resolved]
  - Sputum discoloured [Not Recovered/Not Resolved]
  - Abdominal discomfort [Not Recovered/Not Resolved]
  - Abdominal distension [Not Recovered/Not Resolved]
  - Flatulence [Not Recovered/Not Resolved]
  - Dyspnoea [Not Recovered/Not Resolved]
  - Therapy non-responder [Unknown]

NARRATIVE: CASE EVENT DATE: 20250101
